FAERS Safety Report 14329455 (Version 2)
Quarter: 2018Q1

REPORT INFORMATION
  Report Type: Spontaneous
  Country: DE (occurrence: DE)
  Receive Date: 20171227
  Receipt Date: 20180109
  Transmission Date: 20180509
  Serious: Yes (Other)
  Sender: FDA-Public Use
  Company Number: DE-TEVA-2017-DE-836053

PATIENT
  Age: 75 Year
  Sex: Female

DRUGS (2)
  1. CEFUROXIME. [Suspect]
     Active Substance: CEFUROXIME
     Indication: CELLULITIS
     Route: 042
  2. CLINDAMYCIN. [Suspect]
     Active Substance: CLINDAMYCIN
     Indication: CELLULITIS
     Route: 042

REACTIONS (2)
  - Rash maculo-papular [Recovered/Resolved]
  - Type IV hypersensitivity reaction [Recovering/Resolving]
